FAERS Safety Report 25607285 (Version 2)
Quarter: 2025Q3

REPORT INFORMATION
  Report Type: Spontaneous
  Country: EU (occurrence: EU)
  Receive Date: 20250725
  Receipt Date: 20250809
  Transmission Date: 20251020
  Serious: Yes (Death, Life-Threatening, Other)
  Sender: AMGEN
  Company Number: EU-AMGEN-DNKSP2025144071

PATIENT

DRUGS (3)
  1. PANITUMUMAB [Suspect]
     Active Substance: PANITUMUMAB
     Indication: Ovarian epithelial cancer
     Route: 065
  2. PANITUMUMAB [Suspect]
     Active Substance: PANITUMUMAB
     Indication: Off label use
  3. DOXORUBICIN [Suspect]
     Active Substance: DOXORUBICIN
     Indication: Ovarian epithelial cancer
     Route: 040

REACTIONS (42)
  - Ileus [Fatal]
  - Arterial thrombosis [Unknown]
  - Dyspnoea [Unknown]
  - Pulmonary embolism [Unknown]
  - Peripheral sensory neuropathy [Unknown]
  - Neutropenia [Unknown]
  - Thrombocytopenia [Unknown]
  - Febrile neutropenia [Unknown]
  - Neuropathy peripheral [Unknown]
  - Urethral stenosis [Unknown]
  - Infection [Unknown]
  - Anaemia [Unknown]
  - Constipation [Unknown]
  - Pain [Unknown]
  - Diarrhoea [Unknown]
  - Nausea [Unknown]
  - Vomiting [Unknown]
  - Stomatitis [Unknown]
  - Rash [Unknown]
  - Fatigue [Unknown]
  - Hypokalaemia [Unknown]
  - Deep vein thrombosis [Unknown]
  - Ventricular dysfunction [Unknown]
  - Oedema [Unknown]
  - Disease progression [Unknown]
  - Cystitis [Unknown]
  - Hypoalbuminaemia [Unknown]
  - Gamma-glutamyltransferase increased [Unknown]
  - Nail toxicity [Unknown]
  - Therapy partial responder [Unknown]
  - Keratitis [Unknown]
  - Hypersensitivity [Unknown]
  - Hypocalcaemia [Unknown]
  - Hypomagnesaemia [Unknown]
  - Palmar-plantar erythrodysaesthesia syndrome [Unknown]
  - Mucosal inflammation [Unknown]
  - Alopecia [Unknown]
  - Dehydration [Unknown]
  - Conjunctivitis [Unknown]
  - Dry eye [Unknown]
  - Skin toxicity [Unknown]
  - Off label use [Unknown]
